FAERS Safety Report 6879111-7 (Version None)
Quarter: 2010Q3

REPORT INFORMATION
  Report Type: 
  Country: None (occurrence: None)
  Receive Date: 20100728
  Receipt Date: 20100625
  Transmission Date: 20110219
  Serious: Yes (Death, Other)
  Sender: FDA-Public Use
  Company Number: BE-BAYER-201026326GPV

PATIENT
  Age: 49 Year
  Sex: Female
  Weight: 54 kg

DRUGS (16)
  1. FLUDARABINE PHOSPHATE [Suspect]
     Indication: ACUTE MYELOID LEUKAEMIA
     Dosage: 30 MG/M2 DAY -6 AND DAY -3
     Route: 042
     Dates: start: 20100508, end: 20100508
  2. FLUDARABINE PHOSPHATE [Suspect]
     Dosage: 30 MG/M2 DAY -6 AND DAY -3
     Route: 042
     Dates: start: 20100511, end: 20100511
  3. CLOFARABINE [Suspect]
     Indication: ACUTE MYELOID LEUKAEMIA
     Dates: start: 20100426
  4. BUSULFAN [Suspect]
     Indication: ACUTE MYELOID LEUKAEMIA
     Dosage: 0.5 MG/KG EVERY 6 HOURS
     Route: 048
     Dates: start: 20100509, end: 20100509
  5. BUSULFAN [Suspect]
     Dosage: 0.5 MG/KG EVERY 6 HOURS
     Route: 048
     Dates: start: 20100510, end: 20100510
  6. CYTARABINE [Concomitant]
     Indication: ACUTE MYELOID LEUKAEMIA
     Dates: start: 20100423, end: 20100429
  7. OMEPRAZOLE [Concomitant]
     Dosage: 20 1X
  8. XANAX [Concomitant]
     Dosage: TOTAL DAILY DOSE: 1.5 MG
  9. ORGAMETRIL [Concomitant]
  10. NOXAFIL [Concomitant]
     Dosage: TOTAL DAILY DOSE: 15 ML
  11. PURINETHOL [Concomitant]
     Dosage: 2 PER DAY
  12. HYDREA [Concomitant]
     Dosage: 4 PER DAY
  13. ZOLPIDEM [Concomitant]
  14. SYNGEL [Concomitant]
     Dosage: 4 MEASURES PER DAY
  15. MOTILIUM [Concomitant]
  16. CYCLOSPORINE [Concomitant]
     Indication: PROPHYLAXIS AGAINST GRAFT VERSUS HOST DISEASE
     Dosage: FROM DAY -1
     Route: 042

REACTIONS (15)
  - ANAEMIA [None]
  - CHOLESTASIS [None]
  - DECUBITUS ULCER [None]
  - DEPRESSED LEVEL OF CONSCIOUSNESS [None]
  - ENTEROBACTER SEPSIS [None]
  - ENTEROCOCCAL BACTERAEMIA [None]
  - GUILLAIN-BARRE SYNDROME [None]
  - HYPERBILIRUBINAEMIA [None]
  - JAUNDICE [None]
  - PARAPARESIS [None]
  - RECTAL HAEMORRHAGE [None]
  - RENAL FAILURE [None]
  - RESPIRATORY DISORDER [None]
  - THROMBOCYTOPENIA [None]
  - TOXIC ENCEPHALOPATHY [None]
